FAERS Safety Report 8809793 (Version 1)
Quarter: 2012Q4

REPORT INFORMATION
  Report Type: 
  Country: US (occurrence: US)
  Receive Date: 20120926
  Receipt Date: 20120926
  Transmission Date: 20130627
  Serious: Yes (Hospitalization, Other)
  Sender: FDA-Public Use
  Company Number: US-FRI-1000038823

PATIENT
  Sex: Female

DRUGS (5)
  1. LEXAPRO [Suspect]
     Indication: MOOD SWINGS
     Dates: start: 2012
  2. LEXAPRO [Suspect]
     Indication: CRYING
  3. REBIF [Suspect]
     Route: 058
     Dates: start: 20111214
  4. ALCOHOL [Suspect]
  5. ACETAMINOPHEN [Concomitant]
     Indication: PREMEDICATION

REACTIONS (4)
  - Convulsion [Unknown]
  - Weight decreased [Unknown]
  - Injection site erythema [Not Recovered/Not Resolved]
  - Off label use [Unknown]
